FAERS Safety Report 26103647 (Version 1)
Quarter: 2025Q4

REPORT INFORMATION
  Report Type: Other
  Country: EU (occurrence: EU)
  Receive Date: 20251129
  Receipt Date: 20251129
  Transmission Date: 20260118
  Serious: Yes (Hospitalization, Other)
  Sender: NOVITIUM PHARMA
  Company Number: EU-NOVITIUM PHARMA-000332

PATIENT
  Age: 17 Year
  Sex: Female

DRUGS (2)
  1. MESALAMINE [Suspect]
     Active Substance: MESALAMINE
     Indication: Crohn^s disease
  2. AZATHIOPRINE [Concomitant]
     Active Substance: AZATHIOPRINE
     Indication: Crohn^s disease

REACTIONS (5)
  - Proteinuria [Recovered/Resolved]
  - Haematuria [Recovered/Resolved]
  - Aminoaciduria [Unknown]
  - Crystalluria [Recovered/Resolved]
  - Nephrolithiasis [Unknown]
